FAERS Safety Report 9686120 (Version 1)
Quarter: 2013Q4

REPORT INFORMATION
  Report Type: Spontaneous
  Country: KR (occurrence: None)
  Receive Date: 20131108
  Receipt Date: 20131108
  Transmission Date: 20140711
  Serious: Yes (Hospitalization)
  Sender: FDA-Public Use
  Company Number: JP-2013-14928

PATIENT
  Age: 66 Year
  Sex: Male

DRUGS (1)
  1. OPC-13013 (CILOSTAZOL) TABLET [Suspect]

REACTIONS (3)
  - Wound [None]
  - Condition aggravated [None]
  - Impaired healing [None]
